FAERS Safety Report 5121116-0 (Version None)
Quarter: 2006Q4

REPORT INFORMATION
  Report Type: 
  Country: None (occurrence: None)
  Receive Date: 20061002
  Receipt Date: 20060919
  Transmission Date: 20070319
  Serious: Yes (Death, Life-Threatening, Hospitalization)
  Sender: FDA-Public Use
  Company Number: 2006113592

PATIENT
  Age: 51 Year
  Sex: Male
  Weight: 65 kg

DRUGS (16)
  1. SOLU-MEDROL [Suspect]
     Dosage: 60 MG (60 MG, 1 IN 1 D), INTRAVENOUS
     Route: 042
     Dates: start: 20050921, end: 20050921
  2. CISPLATIN [Suspect]
     Indication: NON-SMALL CELL LUNG CANCER METASTATIC
     Dosage: 135 MG (135 MG, 1 IN 1 D), INTRAVENOUS
     Route: 042
     Dates: start: 20050921, end: 20050921
  3. ACETAMINOPHEN [Suspect]
     Dosage: 3 GRAM (1 D), ORAL
     Route: 048
     Dates: end: 20050922
  4. AMITRIPTYLINE HCL [Suspect]
     Dosage: 5 MG (5 MG, 1 IN 1 D), ORAL
     Route: 048
     Dates: end: 20050922
  5. TAXOTERE [Suspect]
     Indication: NON-SMALL CELL LUNG CANCER METASTATIC
     Dosage: 130 MG (130 MG,1 IN 1 D), INTRAVENOUS
     Route: 042
     Dates: start: 20050921, end: 20050921
  6. ZOFRAN [Suspect]
     Indication: PROPHYLAXIS OF NAUSEA AND VOMITING
     Dosage: 8 MG (8 MG, 1 IN 1 D), INTRAVENOUS
     Route: 042
     Dates: start: 20050921, end: 20050922
  7. MORPHINE SULFATE [Concomitant]
  8. MORPHINE SULFATE [Concomitant]
  9. MEDROL [Concomitant]
  10. NEXIUM [Concomitant]
  11. LOVENOX [Concomitant]
  12. FORLAX (MACROGOL) [Concomitant]
  13. PRIMPERAN TAB [Concomitant]
  14. KETOPROFEN [Concomitant]
  15. ALL OTHER THERAPEUTIC PRODUCTS [Concomitant]
  16. LASIX [Concomitant]

REACTIONS (8)
  - ANXIETY [None]
  - ASTHENIA [None]
  - FEAR [None]
  - HYPOXIA [None]
  - INTERSTITIAL LUNG DISEASE [None]
  - OBSTRUCTION [None]
  - RESPIRATORY DISTRESS [None]
  - UNEVALUABLE EVENT [None]
